FAERS Safety Report 9565264 (Version 1)
Quarter: 2013Q3

REPORT INFORMATION
  Report Type: Spontaneous
  Country: VE (occurrence: VE)
  Receive Date: 20130930
  Receipt Date: 20130930
  Transmission Date: 20140515
  Serious: Yes (Death)
  Sender: FDA-Public Use
  Company Number: VE-PFIZER INC-2013279366

PATIENT
  Age: 77 Year
  Sex: Female

DRUGS (1)
  1. CADUET [Suspect]
     Dosage: 1 DF, UNK

REACTIONS (1)
  - Myocardial infarction [Fatal]
